FAERS Safety Report 4711307-2 (Version None)
Quarter: 2005Q3

REPORT INFORMATION
  Report Type: 
  Country: None (occurrence: None)
  Receive Date: 20050711
  Receipt Date: 20050131
  Transmission Date: 20060218
  Serious: Yes (Death, Hospitalization)
  Sender: FDA-Public Use
  Company Number: HQ0306825AUG2000

PATIENT
  Sex: Female

DRUGS (7)
  1. ENBREL [Suspect]
     Indication: RHEUMATOID ARTHRITIS
     Route: 058
     Dates: start: 19990401, end: 20000401
  2. ORUDIS [Suspect]
     Indication: RHEUMATOID ARTHRITIS
     Route: 048
  3. PREDNISOLONE [Concomitant]
     Route: 065
  4. CYANOCOBALAMIN [Concomitant]
     Route: 065
  5. ETIDRONATE DISODIUM [Concomitant]
     Route: 065
  6. LANSOPRAZOLE [Concomitant]
     Route: 065
  7. CISAPRIDE [Concomitant]
     Route: 065

REACTIONS (6)
  - ASPIRATION [None]
  - CARDIOMEGALY [None]
  - ENTERITIS [None]
  - PULMONARY CONGESTION [None]
  - RENAL FAILURE [None]
  - SHOCK [None]
